FAERS Safety Report 11819245 (Version 1)
Quarter: 2015Q4

REPORT INFORMATION
  Report Type: Spontaneous
  Country: US (occurrence: None)
  Receive Date: 20151209
  Receipt Date: 20151209
  Transmission Date: 20160305
  Serious: Yes (Other)
  Sender: FDA-Public Use
  Company Number: None

PATIENT
  Age: 65 Year
  Sex: Female
  Weight: 92.53 kg

DRUGS (6)
  1. SERTRALINE [Suspect]
     Active Substance: SERTRALINE HYDROCHLORIDE
     Indication: ANXIETY
     Dosage: ONCE A DAY TWICE A DAY
     Dates: end: 20151120
  2. TRAZODONE [Suspect]
     Active Substance: TRAZODONE HYDROCHLORIDE
  3. SERTRALINE [Suspect]
     Active Substance: SERTRALINE HYDROCHLORIDE
     Indication: INSOMNIA
     Dosage: ONCE A DAY TWICE A DAY
     Dates: end: 20151120
  4. SERTRALINE [Suspect]
     Active Substance: SERTRALINE HYDROCHLORIDE
     Indication: DEPRESSION
     Dosage: ONCE A DAY TWICE A DAY
     Dates: end: 20151120
  5. AMBIEN [Suspect]
     Active Substance: ZOLPIDEM TARTRATE
  6. BUSPIRONE [Suspect]
     Active Substance: BUSPIRONE HYDROCHLORIDE

REACTIONS (9)
  - Malaise [None]
  - Anxiety [None]
  - Diarrhoea [None]
  - Headache [None]
  - Mental disorder [None]
  - Nausea [None]
  - Dizziness [None]
  - Insomnia [None]
  - Nervousness [None]

NARRATIVE: CASE EVENT DATE: 20151101
